FAERS Safety Report 22623706 (Version 1)
Quarter: 2023Q2

REPORT INFORMATION
  Report Type: Spontaneous
  Country: IT (occurrence: IT)
  Receive Date: 20230621
  Receipt Date: 20230621
  Transmission Date: 20230722
  Serious: Yes (Hospitalization)
  Sender: FDA-Public Use
  Company Number: None

PATIENT
  Age: 9 Year
  Sex: Male
  Weight: 19 kg

DRUGS (11)
  1. DAPTOMYCIN [Suspect]
     Active Substance: DAPTOMYCIN
     Dosage: DAPTOMYCIN 140 MG/DAY (SCHEDULED UNTIL 09 /JUNE)
     Route: 051
  2. CLOBAZAM [Suspect]
     Active Substance: CLOBAZAM
     Dosage: CLOBAZAM 2.5 MG + 5 MG /DAY
     Route: 048
  3. OMEPRAZOLE [Suspect]
     Active Substance: OMEPRAZOLE
     Dosage: OMEPRAZOLO 20 MG/DAY
     Route: 051
  4. AMIODARONE [Suspect]
     Active Substance: AMIODARONE
     Dosage: AMIODARONE 100 MG/DAY
     Route: 048
  5. FUROSEMIDE [Suspect]
     Active Substance: FUROSEMIDE
     Dosage: LASIX 5 MG AS NEEDED (ADMINISTERED 10 MG ON 01/JUNE, 5 MG ON 02, 03, 04, 05 AND 06/JUNE)
     Route: 051
  6. ASPIRIN DL-LYSINE [Suspect]
     Active Substance: ASPIRIN DL-LYSINE
     Dosage: CARDIRENE 75 MG/DAY
     Route: 048
  7. CALCIFEDIOL [Suspect]
     Active Substance: CALCIFEDIOL
     Dosage: DIHYDROGYL 3 DROPS/DAY
     Route: 048
  8. VALPROIC ACID [Suspect]
     Active Substance: VALPROIC ACID
     Dosage: DEPAKIN SACHETS: 250 MG TWICE A DAY
     Route: 048
  9. TOPIRAMATE [Suspect]
     Active Substance: TOPIRAMATE
     Dosage: TOPIRAMATE 12.5 MG TWICE A DAY
     Route: 048
  10. ETHOSUXIMIDE [Suspect]
     Active Substance: ETHOSUXIMIDE
     Dosage: ETHOSUXIMIDE 250 MG + 300 MG (ADDITIONAL TAPER PLANNED)
     Route: 048
  11. MEROPENEM [Suspect]
     Active Substance: MEROPENEM
     Dosage: MERREM 600 MG X 3 TIMES/DAY (SCHEDULED UNTIL 07/JUNE)
     Route: 051

REACTIONS (1)
  - Oliguria [Not Recovered/Not Resolved]

NARRATIVE: CASE EVENT DATE: 20230528
